APPROVED DRUG PRODUCT: EPIRUBICIN HYDROCHLORIDE
Active Ingredient: EPIRUBICIN HYDROCHLORIDE
Strength: 200MG/100ML (2MG/ML)
Dosage Form/Route: INJECTABLE;INJECTION
Application: A065331 | Product #002 | TE Code: AP
Applicant: IMPAX LABORATORIES INC
Approved: Aug 9, 2007 | RLD: No | RS: No | Type: RX